FAERS Safety Report 15523161 (Version 1)
Quarter: 2018Q4

REPORT INFORMATION
  Report Type: Spontaneous
  Country: FR (occurrence: FR)
  Receive Date: 20181018
  Receipt Date: 20181018
  Transmission Date: 20190205
  Serious: Yes (Hospitalization)
  Sender: FDA-Public Use
  Company Number: FR-TEVA-2018-FR-965470

PATIENT
  Age: 64 Year
  Sex: Male

DRUGS (4)
  1. OXALIPLATINE [Suspect]
     Active Substance: OXALIPLATIN
     Indication: ADENOCARCINOMA OF COLON
     Dosage: 85 MG/M2
     Route: 042
     Dates: start: 20160630
  2. AVASTIN [Suspect]
     Active Substance: BEVACIZUMAB
     Dosage: 5 MG/KG
     Route: 042
     Dates: start: 20160630
  3. IRINOTECAN [Suspect]
     Active Substance: IRINOTECAN
     Indication: ADENOCARCINOMA OF COLON
     Dosage: 180 MG/M2
     Route: 042
     Dates: start: 20160630
  4. FLUOROURACILE [Suspect]
     Active Substance: FLUOROURACIL
     Indication: ADENOCARCINOMA OF COLON
     Dosage: 2400 MG/KG
     Route: 042
     Dates: start: 20160630

REACTIONS (2)
  - Seizure [Recovered/Resolved]
  - Blood creatine phosphokinase increased [Unknown]

NARRATIVE: CASE EVENT DATE: 20160702
